FAERS Safety Report 19967494 (Version 1)
Quarter: 2021Q4

REPORT INFORMATION
  Report Type: Spontaneous
  Country: US (occurrence: US)
  Receive Date: 20211014
  Receipt Date: 20211014
  Transmission Date: 20220303
  Serious: No
  Sender: FDA-Public Use
  Company Number: None

PATIENT
  Sex: Female

DRUGS (10)
  1. HUMIRA [Suspect]
     Active Substance: ADALIMUMAB
     Indication: Systemic lupus erythematosus
     Dosage: 1 PEN (40MG) QOW SQ
     Route: 058
     Dates: start: 20210121
  2. CYMALTA [Concomitant]
  3. ESTRACE [Concomitant]
     Active Substance: ESTRADIOL
  4. GEODON [Concomitant]
     Active Substance: ZIPRASIDONE HYDROCHLORIDE\ZIPRASIDONE MESYLATE
  5. ACETAMINOPHEN\HYDROCODONE [Concomitant]
     Active Substance: ACETAMINOPHEN\HYDROCODONE
  6. LAMICTAL [Concomitant]
     Active Substance: LAMOTRIGINE
  7. LAMICTAL ODT [Concomitant]
     Active Substance: LAMOTRIGINE
  8. LEVOTHYROXINE [Concomitant]
     Active Substance: LEVOTHYROXINE
  9. MULTIVITAMIN WOMENS [Concomitant]
  10. TRAZODONE [Concomitant]
     Active Substance: TRAZODONE HYDROCHLORIDE

REACTIONS (1)
  - Osteonecrosis [None]
